FAERS Safety Report 4646194-4 (Version None)
Quarter: 2005Q2

REPORT INFORMATION
  Report Type: 
  Country: None (occurrence: None)
  Receive Date: 20050425
  Receipt Date: 20050415
  Transmission Date: 20051028
  Serious: Yes (Other)
  Sender: FDA-Public Use
  Company Number: HQWYE038915APR05

PATIENT
  Age: 52 Year
  Sex: Male

DRUGS (5)
  1. EFFEXOR XR [Suspect]
     Dosage: SEE IMAGE
     Route: 048
     Dates: start: 20050301, end: 20050301
  2. EFFEXOR XR [Suspect]
     Dosage: SEE IMAGE
     Route: 048
     Dates: start: 20050412, end: 20050412
  3. DILOSYN (METHDILAZINE HYDROCHLORIDE) [Concomitant]
  4. INDERAL [Concomitant]
  5. LOSEC (OMEPRAZOLE) [Concomitant]

REACTIONS (6)
  - ASTHENIA [None]
  - BACK PAIN [None]
  - DYSSTASIA [None]
  - DYSURIA [None]
  - HYPERSOMNIA [None]
  - STOMACH DISCOMFORT [None]
